FAERS Safety Report 6159659-3 (Version None)
Quarter: 2009Q2

REPORT INFORMATION
  Report Type: 
  Country: None (occurrence: None)
  Receive Date: 20090420
  Receipt Date: 20081126
  Transmission Date: 20091009
  Serious: Yes (Death)
  Sender: FDA-Public Use
  Company Number: US-ASTRAZENECA-2008AC03040

PATIENT
  Age: 16 Year
  Sex: Female

DRUGS (2)
  1. BUPIVACAINE [Suspect]
     Route: 042
  2. FENTANYL [Suspect]
     Route: 008

REACTIONS (1)
  - INCORRECT ROUTE OF DRUG ADMINISTRATION [None]
